FAERS Safety Report 16647031 (Version 2)
Quarter: 2020Q3

REPORT INFORMATION
  Report Type: Spontaneous
  Country: AU (occurrence: AU)
  Receive Date: 20190730
  Receipt Date: 20200831
  Transmission Date: 20201102
  Serious: Yes (Other)
  Sender: FDA-Public Use
  Company Number: AU-PFIZER INC-2019101311

PATIENT
  Age: 49 Year
  Sex: Female

DRUGS (4)
  1. ZOLOFT [Suspect]
     Active Substance: SERTRALINE HYDROCHLORIDE
     Dosage: A QUARTER OF A TABLET (12.5 MG)
  2. XARELTO [Concomitant]
     Active Substance: RIVAROXABAN
     Dosage: UNK
  3. ZOLOFT [Suspect]
     Active Substance: SERTRALINE HYDROCHLORIDE
     Indication: ANXIETY
     Dosage: HALF A TABLET (25MG)
  4. ZOLOFT [Suspect]
     Active Substance: SERTRALINE HYDROCHLORIDE
     Dosage: A WHOLE TABLET (50MG)

REACTIONS (8)
  - Supraventricular extrasystoles [Unknown]
  - Depressed mood [Unknown]
  - Condition aggravated [Unknown]
  - Bruxism [Unknown]
  - Product dose omission issue [Unknown]
  - Deep vein thrombosis [Unknown]
  - Arrhythmia [Unknown]
  - Heart rate decreased [Unknown]
